FAERS Safety Report 10302295 (Version 1)
Quarter: 2014Q3

REPORT INFORMATION
  Report Type: Spontaneous
  Country: US (occurrence: None)
  Receive Date: 20140710
  Receipt Date: 20140710
  Transmission Date: 20150326
  Serious: Yes (Hospitalization)
  Sender: FDA-Public Use
  Company Number: None

PATIENT
  Age: 62 Year
  Sex: Female
  Weight: 85.8 kg

DRUGS (1)
  1. INTRON A [Suspect]
     Active Substance: INTERFERON ALFA-2B
     Dates: end: 20140703

REACTIONS (7)
  - Tachycardia [None]
  - Ejection fraction decreased [None]
  - Dyspnoea [None]
  - Hyperhidrosis [None]
  - Dehydration [None]
  - Hypoxia [None]
  - Dizziness [None]

NARRATIVE: CASE EVENT DATE: 20140708
